FAERS Safety Report 25066823 (Version 3)
Quarter: 2025Q3

REPORT INFORMATION
  Report Type: Spontaneous
  Country: CA (occurrence: CA)
  Receive Date: 20250312
  Receipt Date: 20250905
  Transmission Date: 20251021
  Serious: Yes (Other)
  Sender: ORGANON
  Company Number: CA-ORGANON-O2503CAN000752

PATIENT
  Sex: Male

DRUGS (1)
  1. PROPECIA [Suspect]
     Active Substance: FINASTERIDE
     Indication: Product used for unknown indication
     Route: 065
     Dates: start: 2009

REACTIONS (4)
  - Major depression [Not Recovered/Not Resolved]
  - Loss of libido [Recovering/Resolving]
  - Infertility male [Not Recovered/Not Resolved]
  - Apathy [Not Recovered/Not Resolved]
